FAERS Safety Report 11319464 (Version 4)
Quarter: 2015Q3

REPORT INFORMATION
  Report Type: Report from Study
  Country: IT (occurrence: IT)
  Receive Date: 20150729
  Receipt Date: 20150917
  Transmission Date: 20151125
  Serious: Yes (Death, Life-Threatening, Other)
  Sender: FDA-Public Use
  Company Number: IT-AMGEN-ITANI2015075764

PATIENT
  Age: 71 Year
  Sex: Male
  Weight: 79 kg

DRUGS (13)
  1. RAMIPRIL. [Concomitant]
     Active Substance: RAMIPRIL
     Dosage: 2.5 MG, DAILY
     Dates: start: 201504
  2. LANSOPRAZOLE. [Concomitant]
     Active Substance: LANSOPRAZOLE
     Dosage: 30 MG, DAILY
     Dates: start: 201504
  3. FUROSEMIDE. [Concomitant]
     Active Substance: FUROSEMIDE
     Dosage: 37.5 MG, DAILY
     Dates: start: 201504
  4. ACETYLSALICYLIC ACID [Concomitant]
     Active Substance: ASPIRIN
     Dosage: 100 MG, DAILY
  5. AMIODARONE [Concomitant]
     Active Substance: AMIODARONE
     Dosage: 200 MG, DAILY
     Dates: start: 201504
  6. CLOPIDOGREL [Concomitant]
     Active Substance: CLOPIDOGREL BISULFATE
     Dosage: 75 MG, DAILY
     Dates: start: 201505
  7. SPIRONOLACTONE. [Concomitant]
     Active Substance: SPIRONOLACTONE
     Dosage: 7 MG, DAILY
     Dates: start: 201504
  8. BISOPROLOL [Concomitant]
     Active Substance: BISOPROLOL
     Dosage: 1.25 MG, DAILY
     Dates: start: 201504
  9. MEXILETINE [Concomitant]
     Active Substance: MEXILETINE
     Dosage: 600 MG, DAILY
     Dates: start: 201505
  10. ATORVASTATIN [Concomitant]
     Active Substance: ATORVASTATIN
     Dosage: 20 MG, DAILY
     Dates: start: 201504
  11. METFORMIN [Concomitant]
     Active Substance: METFORMIN HYDROCHLORIDE
     Dosage: 500 MG, DAILY
     Dates: start: 201505
  12. IVABRADINE [Suspect]
     Active Substance: IVABRADINE
     Indication: CARDIAC FAILURE CHRONIC
     Dosage: 5 MG, QD
     Route: 048
     Dates: start: 20150629
  13. ISOSORBIDE MONONITRATE. [Concomitant]
     Active Substance: ISOSORBIDE MONONITRATE
     Dosage: 60 MG, DAILY
     Dates: start: 201504

REACTIONS (9)
  - Hyponatraemic syndrome [Unknown]
  - Blood urea increased [Unknown]
  - Ventricular fibrillation [Fatal]
  - Blood glucose increased [Unknown]
  - Troponin I increased [Unknown]
  - Cardiac arrest [Unknown]
  - Blood creatinine increased [Unknown]
  - Anaemia [Unknown]
  - Pupils unequal [Unknown]

NARRATIVE: CASE EVENT DATE: 20150710
